FAERS Safety Report 9635252 (Version 1)
Quarter: 2013Q4

REPORT INFORMATION
  Report Type: Spontaneous
  Country: FR (occurrence: None)
  Receive Date: 20131017
  Receipt Date: 20131017
  Transmission Date: 20140711
  Serious: Yes (Hospitalization)
  Sender: FDA-Public Use
  Company Number: NSR_01301_2013

PATIENT
  Age: 63 Year
  Sex: 0

DRUGS (1)
  1. TRAMADOL [Suspect]
     Indication: BACK PAIN

REACTIONS (1)
  - Somnolence [None]
